FAERS Safety Report 6774735-X (Version None)
Quarter: 2010Q2

REPORT INFORMATION
  Report Type: 
  Country: None (occurrence: None)
  Receive Date: 20100617
  Receipt Date: 20100610
  Transmission Date: 20101027
  Serious: Yes (Hospitalization, Other)
  Sender: FDA-Public Use
  Company Number: DE-ROCHE-706418

PATIENT
  Sex: Male
  Weight: 60 kg

DRUGS (4)
  1. PEGASYS [Suspect]
     Indication: HEPATITIS C
     Route: 065
     Dates: start: 20090401, end: 20100317
  2. COPEGUS [Suspect]
     Indication: HEPATITIS C
     Route: 048
     Dates: start: 20090401, end: 20100317
  3. VENLAFAXIN [Concomitant]
     Indication: DEPRESSION
     Route: 048
     Dates: start: 20090201, end: 20100501
  4. METHADON [Concomitant]
     Indication: DRUG WITHDRAWAL MAINTENANCE THERAPY
     Dates: start: 20010101

REACTIONS (6)
  - ENDOCARDITIS BACTERIAL [None]
  - GLOMERULONEPHRITIS [None]
  - HEPATITIS C RNA INCREASED [None]
  - LABORATORY TEST ABNORMAL [None]
  - RENAL FAILURE [None]
  - RENAL FAILURE ACUTE [None]
